FAERS Safety Report 8180205-7 (Version None)
Quarter: 2012Q1

REPORT INFORMATION
  Report Type: 
  Country: None (occurrence: None)
  Receive Date: 20120302
  Receipt Date: 20120224
  Transmission Date: 20120608
  Serious: Yes (Other)
  Sender: FDA-Public Use
  Company Number: CA-UCBSA-037545

PATIENT
  Age: 47 Year
  Sex: Female
  Weight: 66 kg

DRUGS (13)
  1. FOSAMAX [Concomitant]
     Indication: OSTEOPOROSIS
     Route: 048
  2. NOVOTRYPTIN [Concomitant]
     Indication: SLEEP DISORDER
     Route: 048
  3. ACTONEL [Concomitant]
     Indication: OSTEOPOROSIS
  4. IMOVANE [Concomitant]
     Indication: PAIN
     Dosage: EVERY NIGHT AT BEDTIME
     Route: 048
  5. IMOVANE [Concomitant]
     Indication: RHEUMATOID ARTHRITIS
     Dosage: EVERY NIGHT AT BEDTIME
     Route: 048
  6. CIMZIA [Suspect]
     Route: 058
     Dates: start: 20110701, end: 20120101
  7. PREDNISONE TAB [Concomitant]
     Indication: RHEUMATOID ARTHRITIS
     Route: 048
  8. NAPROXEN [Concomitant]
     Indication: RHEUMATOID ARTHRITIS
     Route: 048
  9. CIMZIA [Suspect]
     Indication: RHEUMATOID ARTHRITIS
     Route: 058
     Dates: start: 20100601
  10. CIMZIA [Suspect]
     Route: 058
     Dates: start: 20120207, end: 20120221
  11. METHOTREXATE [Suspect]
     Indication: RHEUMATOID ARTHRITIS
     Route: 058
     Dates: start: 20050401
  12. METHOTREXATE [Suspect]
     Route: 048
  13. PLAQUENIL [Concomitant]
     Indication: RHEUMATOID ARTHRITIS
     Route: 048

REACTIONS (7)
  - MALAISE [None]
  - CHEST PAIN [None]
  - CHEST X-RAY ABNORMAL [None]
  - WEIGHT DECREASED [None]
  - COUGH [None]
  - BACK PAIN [None]
  - RESPIRATORY TRACT INFECTION [None]
